FAERS Safety Report 4642633-3 (Version None)
Quarter: 2005Q2

REPORT INFORMATION
  Report Type: 
  Country: None (occurrence: None)
  Receive Date: 20050420
  Receipt Date: 20050407
  Transmission Date: 20051028
  Serious: Yes (Hospitalization, Other)
  Sender: FDA-Public Use
  Company Number: 2005058707

PATIENT
  Age: 79 Year
  Sex: Female

DRUGS (8)
  1. PREDNISONE [Suspect]
     Indication: DERMATITIS EXFOLIATIVE
     Dosage: 40 MG (40 MG, 1 IN 1 D), ORAL
     Route: 048
     Dates: start: 20050311, end: 20050401
  2. TEMAZEPAM [Concomitant]
  3. GLICLAZIDE (GLICLAZIDE) [Concomitant]
  4. FUROSEMIDE [Concomitant]
  5. ISOSORBIDE MONONITRATE [Concomitant]
  6. LORATADINE [Concomitant]
  7. RAMIPRIL [Concomitant]
  8. DOXAZOSIN (DOXAZOSIN) [Concomitant]

REACTIONS (3)
  - DYSPNOEA [None]
  - PULMONARY OEDEMA [None]
  - TREATMENT NONCOMPLIANCE [None]
